FAERS Safety Report 17656647 (Version 3)
Quarter: 2020Q2

REPORT INFORMATION
  Report Type: Spontaneous
  Country: US (occurrence: US)
  Receive Date: 20200410
  Receipt Date: 20200608
  Transmission Date: 20200713
  Serious: Yes (Other)
  Sender: FDA-Public Use
  Company Number: NVSC2020US096378

PATIENT
  Age: 88 Year
  Sex: Female

DRUGS (1)
  1. BEOVU [Suspect]
     Active Substance: BROLUCIZUMAB-DBLL
     Indication: NEOVASCULAR AGE-RELATED MACULAR DEGENERATION
     Dosage: 6 MG (AS NEEDED)
     Route: 047
     Dates: start: 20200115, end: 20200219

REACTIONS (3)
  - Vitritis [Unknown]
  - Vitreous floaters [Recovered/Resolved]
  - Anterior chamber inflammation [Unknown]

NARRATIVE: CASE EVENT DATE: 20200325
